FAERS Safety Report 20061915 (Version 2)
Quarter: 2022Q1

REPORT INFORMATION
  Report Type: Spontaneous
  Country: JP (occurrence: None)
  Receive Date: 20211112
  Receipt Date: 20220113
  Transmission Date: 20220423
  Serious: Yes (Other)
  Sender: FDA-Public Use
  Company Number: 2021A799033

PATIENT
  Age: 72 Year
  Sex: Male

DRUGS (6)
  1. IMFINZI [Suspect]
     Active Substance: DURVALUMAB
     Indication: Non-small cell lung cancer
     Route: 041
     Dates: start: 20210212, end: 20210312
  2. NEXIUM [Concomitant]
     Active Substance: ESOMEPRAZOLE MAGNESIUM
     Dosage: ORAL
     Route: 048
  3. BELSOMRA [Concomitant]
     Active Substance: SUVOREXANT
     Dosage: BEFORE BEDTIME
     Route: 048
  4. METFORMIN HYDROCHLORIDE [Concomitant]
     Active Substance: METFORMIN HYDROCHLORIDE
     Dosage: AFTER EVERY MEAL, 500 MG MILLIGRAM(S) 3 1 / DAY
     Route: 048
  5. REPAGLINIDE [Concomitant]
     Active Substance: REPAGLINIDE
     Dosage: RIGHT BEFORE EVERY MEAL, 0.5 MG MILLIGRAM(S) 3 1 / DAY
     Route: 048
  6. MAGNESIUM OXIDE [Concomitant]
     Active Substance: MAGNESIUM OXIDE
     Dosage: AFTER EVERY MEAL, 500 MG MILLIGRAM(S) 3 1 / DAY
     Route: 048

REACTIONS (4)
  - Metastases to muscle [Unknown]
  - Intestinal metastasis [Unknown]
  - Intestinal obstruction [Unknown]
  - Radiation pneumonitis [Unknown]

NARRATIVE: CASE EVENT DATE: 20210326
